FAERS Safety Report 22271887 (Version 2)
Quarter: 2023Q2

REPORT INFORMATION
  Report Type: Report from Study
  Country: CA (occurrence: CA)
  Receive Date: 20230502
  Receipt Date: 20230606
  Transmission Date: 20230721
  Serious: Yes (Other)
  Sender: FDA-Public Use
  Company Number: CA-JNJFOC-20230455024

PATIENT
  Sex: Male

DRUGS (1)
  1. REMICADE [Suspect]
     Active Substance: INFLIXIMAB
     Indication: Colitis ulcerative
     Dosage: LAST REMICADE INFUSION WAS ON 27-MAR-2023?EXPIRY DATE: APR-2025
     Route: 042

REACTIONS (3)
  - Lupus-like syndrome [Not Recovered/Not Resolved]
  - Arthritis [Unknown]
  - Off label use [Unknown]
